FAERS Safety Report 24033925 (Version 1)
Quarter: 2024Q3

REPORT INFORMATION
  Report Type: Report from Study
  Country: GB (occurrence: GB)
  Receive Date: 20240701
  Receipt Date: 20240701
  Transmission Date: 20241017
  Serious: No
  Sender: ROCHE
  Company Number: GB-ROCHE-3187389

PATIENT
  Sex: Female

DRUGS (2)
  1. EVRYSDI [Suspect]
     Active Substance: RISDIPLAM
     Indication: Product used for unknown indication
     Route: 065
     Dates: start: 20220923
  2. EVRYSDI [Suspect]
     Active Substance: RISDIPLAM
     Dosage: 0.75 MG
     Route: 048
     Dates: start: 202209

REACTIONS (6)
  - Drug level changed [Unknown]
  - Anxiety [Unknown]
  - Malaise [Unknown]
  - Dizziness [Unknown]
  - Fall [Unknown]
  - Inappropriate schedule of product administration [Unknown]
